FAERS Safety Report 17832298 (Version 1)
Quarter: 2020Q2

REPORT INFORMATION
  Report Type: Spontaneous
  Country: US (occurrence: US)
  Receive Date: 20200528
  Receipt Date: 20200528
  Transmission Date: 20200714
  Serious: Yes (Other)
  Sender: FDA-Public Use
  Company Number: US-009507513-2005USA007616

PATIENT
  Sex: Female

DRUGS (17)
  1. SINEMET [Suspect]
     Active Substance: CARBIDOPA\LEVODOPA
     Dosage: UNK, DECREASED DOSE
     Dates: start: 2020
  2. NUPLAZID [Concomitant]
     Active Substance: PIMAVANSERIN TARTRATE
  3. MEGESTROL ACETATE. [Concomitant]
     Active Substance: MEGESTROL ACETATE
  4. MIRTAZAPINE. [Concomitant]
     Active Substance: MIRTAZAPINE
  5. RYTARY [Concomitant]
     Active Substance: CARBIDOPA\LEVODOPA
  6. AMLODIPINE [Concomitant]
     Active Substance: AMLODIPINE BESYLATE
  7. MAGNESIUM OXIDE. [Concomitant]
     Active Substance: MAGNESIUM OXIDE
  8. MEMANTINE. [Concomitant]
     Active Substance: MEMANTINE
  9. ZETIA [Concomitant]
     Active Substance: EZETIMIBE
  10. COZAAR [Concomitant]
     Active Substance: LOSARTAN POTASSIUM
  11. AMANTADINE. [Suspect]
     Active Substance: AMANTADINE HYDROCHLORIDE
     Indication: DYSKINESIA
     Dosage: 274 MILLIGRAM, 1X/DAY AT BEDTIME
     Route: 048
     Dates: start: 20200307
  12. DONEPEZIL. [Concomitant]
     Active Substance: DONEPEZIL
  13. ELIQUIS [Concomitant]
     Active Substance: APIXABAN
  14. FLUDROCORTISONE [Concomitant]
     Active Substance: FLUDROCORTISONE
  15. SINEMET [Suspect]
     Active Substance: CARBIDOPA\LEVODOPA
     Dosage: UNK
     Dates: end: 2020
  16. ATORVASTATIN [Concomitant]
     Active Substance: ATORVASTATIN
  17. PAXIL [Concomitant]
     Active Substance: PAROXETINE HYDROCHLORIDE

REACTIONS (1)
  - Hallucination [Unknown]

NARRATIVE: CASE EVENT DATE: 2020
